FAERS Safety Report 4295412-3 (Version None)
Quarter: 2004Q1

REPORT INFORMATION
  Report Type: 
  Country: None (occurrence: None)
  Receive Date: 20040216
  Receipt Date: 20030715
  Transmission Date: 20041129
  Serious: No
  Sender: FDA-Public Use
  Company Number: US-GLAXOSMITHKLINE-A0418427A

PATIENT
  Age: 49 Year
  Sex: Male

DRUGS (3)
  1. LAMICTAL [Suspect]
     Indication: INSOMNIA
     Route: 048
  2. KLONOPIN [Concomitant]
  3. STRATTERA [Concomitant]

REACTIONS (3)
  - BREATH ODOUR [None]
  - DESQUAMATION GINGIVAL [None]
  - DRY MOUTH [None]
